FAERS Safety Report 6017864-0 (Version None)
Quarter: 2008Q4

REPORT INFORMATION
  Report Type: 
  Country: None (occurrence: None)
  Receive Date: 20081223
  Receipt Date: 20081215
  Transmission Date: 20090506
  Serious: Yes (Hospitalization, Disabling, Other)
  Sender: FDA-Public Use
  Company Number: US-MERCK-0805USA00685

PATIENT
  Age: 53 Year
  Sex: Female

DRUGS (9)
  1. FOSAMAX [Suspect]
     Indication: OSTEOPOROSIS
     Route: 048
     Dates: start: 19950101, end: 20010701
  2. FOSAMAX [Suspect]
     Route: 048
     Dates: start: 20010703, end: 20030622
  3. FOSAMAX [Suspect]
     Route: 048
     Dates: start: 20030623, end: 20070101
  4. ACTONEL [Suspect]
     Indication: OSTEOPOROSIS
     Route: 048
     Dates: start: 20040101
  5. PREDNISONE [Concomitant]
     Route: 065
     Dates: start: 19830101
  6. ORUDIS [Concomitant]
     Route: 065
     Dates: start: 19930101, end: 20070101
  7. FIORINAL [Concomitant]
     Route: 065
     Dates: start: 19970101, end: 20070101
  8. SYNTHROID [Concomitant]
     Route: 065
     Dates: start: 19850101
  9. ELAVIL [Concomitant]
     Route: 065
     Dates: start: 19980101

REACTIONS (56)
  - ABSCESS JAW [None]
  - ACUTE SINUSITIS [None]
  - ANKLE FRACTURE [None]
  - ARTHRITIS [None]
  - ASTHMA [None]
  - BONE LESION [None]
  - BRONCHITIS [None]
  - BULLOUS IMPETIGO [None]
  - BURSITIS [None]
  - CHRONIC OBSTRUCTIVE PULMONARY DISEASE [None]
  - CHRONIC SINUSITIS [None]
  - COUGH [None]
  - DENTAL CARIES [None]
  - DERMATITIS [None]
  - DIARRHOEA [None]
  - DRUG HYPERSENSITIVITY [None]
  - FOOT FRACTURE [None]
  - FUNGAL INFECTION [None]
  - GASTRIC ULCER [None]
  - GINGIVAL SWELLING [None]
  - HEADACHE [None]
  - HERPES ZOSTER [None]
  - IMPAIRED HEALING [None]
  - INFLAMMATORY BOWEL DISEASE [None]
  - JAW DISORDER [None]
  - JOINT DISLOCATION [None]
  - MEGACOLON [None]
  - NAUSEA [None]
  - OEDEMA PERIPHERAL [None]
  - ORAL DISORDER [None]
  - ORAL TORUS [None]
  - OROPHARYNGEAL PAIN [None]
  - OSTEOMYELITIS [None]
  - OSTEONECROSIS [None]
  - OTITIS MEDIA [None]
  - PAIN [None]
  - PERFORATED ULCER [None]
  - PERITONITIS [None]
  - PSEUDOMEMBRANOUS COLITIS [None]
  - PULMONARY EMBOLISM [None]
  - PULMONARY MASS [None]
  - RASH [None]
  - RAYNAUD'S PHENOMENON [None]
  - RHINITIS [None]
  - RIB FRACTURE [None]
  - SCOLIOSIS [None]
  - SJOGREN'S SYNDROME [None]
  - SMALL INTESTINAL OBSTRUCTION [None]
  - SPLENIC RUPTURE [None]
  - SUPERINFECTION [None]
  - TACHYCARDIA [None]
  - THROMBOCYTHAEMIA [None]
  - TOOTH ABSCESS [None]
  - TRAUMATIC LIVER INJURY [None]
  - VASOMOTOR RHINITIS [None]
  - VOMITING [None]
